FAERS Safety Report 9689132 (Version 1)
Quarter: 2013Q4

REPORT INFORMATION
  Report Type: Spontaneous
  Country: IT (occurrence: IT)
  Receive Date: 20131114
  Receipt Date: 20131114
  Transmission Date: 20140711
  Serious: Yes (Other)
  Sender: FDA-Public Use
  Company Number: IT-PFIZER INC-2013324815

PATIENT
  Age: 42 Year
  Sex: Male

DRUGS (1)
  1. SUTENT [Suspect]
     Indication: RENAL NEOPLASM
     Dosage: UNK
     Route: 048
     Dates: start: 20130819, end: 20130910

REACTIONS (3)
  - Hyperpyrexia [Recovering/Resolving]
  - Haemorrhoids [Recovering/Resolving]
  - Mucosal inflammation [Recovering/Resolving]
